FAERS Safety Report 5209116-3 (Version None)
Quarter: 2007Q1

REPORT INFORMATION
  Report Type: 
  Country: None (occurrence: None)
  Receive Date: 20070110
  Receipt Date: 20061204
  Transmission Date: 20070707
  Serious: Yes (Death)
  Sender: FDA-Public Use
  Company Number: 9039997-2006-00124

PATIENT

DRUGS (2)
  1. LEVULAN [Suspect]
     Indication: NEOPLASM
     Dosage: 600 MG/KG, ORAL
     Route: 048
  2. LEVULAN [Suspect]
     Indication: NEOPLASM MALIGNANT
     Dosage: 600 MG/KG, ORAL
     Route: 048

REACTIONS (1)
  - NON-HODGKIN'S LYMPHOMA [None]
